FAERS Safety Report 8501605-9 (Version None)
Quarter: 2012Q3

REPORT INFORMATION
  Report Type: 
  Country: None (occurrence: None)
  Receive Date: 20120710
  Receipt Date: 20120706
  Transmission Date: 20120928
  Serious: Yes (Hospitalization, Other)
  Sender: FDA-Public Use
  Company Number: FR-ROCHE-1084861

PATIENT
  Age: 82 Year
  Sex: Female

DRUGS (5)
  1. CORTICOID [Concomitant]
  2. PAROXETINE HCL [Concomitant]
  3. ALENDRONATE SODIUM [Concomitant]
  4. DILTIAZEM HCL [Concomitant]
     Indication: HYPERTENSION
  5. RITUXAN [Suspect]
     Indication: RHEUMATOID ARTHRITIS

REACTIONS (2)
  - TRANSIENT ISCHAEMIC ATTACK [None]
  - HYPERTENSION [None]
